FAERS Safety Report 15749451 (Version 9)
Quarter: 2019Q3

REPORT INFORMATION
  Report Type: Spontaneous
  Country: CA (occurrence: CA)
  Receive Date: 20181221
  Receipt Date: 20190702
  Transmission Date: 20191004
  Serious: Yes (Other)
  Sender: FDA-Public Use
  Company Number: CA-CELLTRION INC.-2016CA014412

PATIENT

DRUGS (62)
  1. INFLECTRA [Suspect]
     Active Substance: INFLIXIMAB-DYYB
     Indication: PSORIATIC ARTHROPATHY
     Dosage: 1000 MG, WEEKS 0, 2 THEN EVERY 6 WEEKS
     Route: 042
     Dates: start: 20160906, end: 20161130
  2. INFLECTRA [Suspect]
     Active Substance: INFLIXIMAB-DYYB
     Dosage: 1050 MG, THEN EVERY 4 WEEKS
     Route: 042
     Dates: start: 20180420
  3. ELTROXIN [Concomitant]
     Active Substance: LEVOTHYROXINE
     Dosage: 200 MG, DAILY(FOR LIFE)
     Route: 048
  4. PREDNISONE. [Concomitant]
     Active Substance: PREDNISONE
     Dosage: 5 MG CAPS 1 PILL AT BREAKFAST EVERY 2 DAYS FOR 1 MONTH
  5. ACETAMINOPHEN. [Concomitant]
     Active Substance: ACETAMINOPHEN
     Dosage: 1000 MG, UNK
     Route: 048
     Dates: start: 20190423
  6. INFLECTRA [Suspect]
     Active Substance: INFLIXIMAB-DYYB
     Indication: ARTHRALGIA
     Dosage: 1000 MG, EVERY 4 WEEKS FOR 12 MONTHS
     Route: 042
  7. INFLECTRA [Suspect]
     Active Substance: INFLIXIMAB-DYYB
     Indication: PSORIASIS
     Dosage: 1000 MG, EVERY 4 WEEKS FOR 12 MONTHS
     Route: 042
  8. INFLECTRA [Suspect]
     Active Substance: INFLIXIMAB-DYYB
     Dosage: 1050 MG, EVERY 4 WEEKS
     Route: 042
     Dates: start: 20180615
  9. INFLECTRA [Suspect]
     Active Substance: INFLIXIMAB-DYYB
     Dosage: 1050 MG, THEN EVERY 4 WEEKS
     Route: 042
     Dates: start: 20190326
  10. VITAMIN K [Concomitant]
     Active Substance: PHYTONADIONE
     Dosage: 2 CAPSULES 2X DAY AT BREAKFAST AND SUPPER FOR 10 DAYS
     Dates: start: 20170112
  11. INFLECTRA [Suspect]
     Active Substance: INFLIXIMAB-DYYB
     Dosage: 1050 MG THEN EVERY 4 WEEKS
     Route: 042
  12. IMURAN [Concomitant]
     Active Substance: AZATHIOPRINE
     Dosage: UNK
     Route: 065
  13. ELTROXIN [Concomitant]
     Active Substance: LEVOTHYROXINE
     Indication: HYPOTHYROIDISM
     Dosage: 1 DF, 1X/DAY (AM AND PM) WITH 0.05 MG
     Dates: start: 20160807
  14. PREDNISONE. [Concomitant]
     Active Substance: PREDNISONE
     Indication: ARTHRITIS
     Dosage: 15 MG, DAILY(LONG TERM)
     Route: 048
  15. LORATADINE. [Concomitant]
     Active Substance: LORATADINE
     Dosage: 10 MG, UNK
     Route: 048
     Dates: start: 20190423
  16. OTEZLA [Concomitant]
     Active Substance: APREMILAST
     Indication: IMMUNOMODULATORY THERAPY
     Dosage: UNK
     Dates: start: 20180322
  17. OTEZLA [Concomitant]
     Active Substance: APREMILAST
     Dosage: (10MG-20MG-30MG) CAPSULE ; 1 CAPSULE IN THE MORNING FOR 1 DAY, 1 CAPSULE 2X DAY MORNING AND NIGHT FO
     Dates: start: 20180221, end: 201805
  18. MIRENA [Concomitant]
     Active Substance: LEVONORGESTREL
     Dosage: UNK
     Route: 015
     Dates: start: 20180302
  19. DEXILANT [Concomitant]
     Active Substance: DEXLANSOPRAZOLE
     Indication: ABDOMINAL DISCOMFORT
     Dosage: 1 DF, 1X/DAY (30 MINUTES BEFORE BREAKFAST)
     Dates: start: 20171123
  20. APC-LORATADINE [Concomitant]
     Indication: HYPERSENSITIVITY
     Dosage: 1 DF, 1X/DAY
     Dates: start: 20170509
  21. ACETAMINOPHEN. [Concomitant]
     Active Substance: ACETAMINOPHEN
     Dosage: 1000 MG
     Route: 048
     Dates: start: 20190107
  22. SOLU-MEDROL [Concomitant]
     Active Substance: METHYLPREDNISOLONE SODIUM SUCCINATE
     Indication: PREMEDICATION
     Dosage: 40 MG
     Route: 042
     Dates: start: 20190524
  23. INFLECTRA [Suspect]
     Active Substance: INFLIXIMAB-DYYB
     Dosage: 1050 MG, (THEN EVERY 4 WEEKS FOR 12 MONTHS)
     Route: 042
     Dates: start: 20180120
  24. INFLECTRA [Suspect]
     Active Substance: INFLIXIMAB-DYYB
     Dosage: 1050 MG, EVERY 4 WEEKS
     Route: 042
     Dates: start: 20180810
  25. INFLECTRA [Suspect]
     Active Substance: INFLIXIMAB-DYYB
     Dosage: 1050 MG, EVERY 4 WEEKS
     Route: 042
     Dates: start: 20190618
  26. PREDNISONE. [Concomitant]
     Active Substance: PREDNISONE
     Dosage: 3 CAPSULES 1X DAY AT BREAKFAST FOR 7 DAYS AND 2 CAPSULES 2X DAY AT BREAKFAST FOR 7 DAYS AND 1 CAPSUL
     Dates: start: 20180215
  27. JAMP CALCIUM [Concomitant]
     Dosage: 1 DF, 1X/DAY (AT LUNCH AND SUPPER)
     Dates: start: 20171123
  28. ACETAMINOPHEN. [Concomitant]
     Active Substance: ACETAMINOPHEN
     Dosage: 1000 MG, UNK
     Route: 048
     Dates: start: 20190524
  29. INFLECTRA [Suspect]
     Active Substance: INFLIXIMAB-DYYB
     Dosage: 1050 MG, (10 MG/KG), THEN EVERY 4 WEEKS FOR 12 MONTHS
     Route: 042
  30. LORATADINE. [Concomitant]
     Active Substance: LORATADINE
     Indication: PRURITUS
     Dosage: 10 MG, SINGLE
     Route: 048
     Dates: start: 20180322, end: 20180322
  31. OTEZLA [Concomitant]
     Active Substance: APREMILAST
     Dosage: 2X DAY MORNING AND NIGHT REGULARLY
     Dates: start: 20180312
  32. JAMP VITAMIN D [Concomitant]
     Dosage: 1 DF, WEEKLY
     Dates: start: 20171123
  33. ELTROXIN LF [Concomitant]
     Indication: HYPOTHYROIDISM
     Dosage: 0.15 MG AS CAPSULE ONCE A DAY IN THE MORNING (WITH A CAPSULE OF 0.05MG = 0.200MG)
     Dates: start: 20160807
  34. ACETAMINOPHEN. [Concomitant]
     Active Substance: ACETAMINOPHEN
     Dosage: 1000 UNK
     Route: 048
     Dates: start: 20190618
  35. APO-PREDNISONE [Concomitant]
     Active Substance: PREDNISONE
     Dosage: UNK
  36. INFLECTRA [Suspect]
     Active Substance: INFLIXIMAB-DYYB
     Dosage: 1050 MG, THEN EVERY 4 WEEKS
     Route: 042
     Dates: start: 20180322
  37. INFLECTRA [Suspect]
     Active Substance: INFLIXIMAB-DYYB
     Dosage: 1050 MG, EVERY 4 WEEKS
     Route: 042
     Dates: start: 20181207
  38. INFLECTRA [Suspect]
     Active Substance: INFLIXIMAB-DYYB
     Dosage: UNK
     Route: 042
     Dates: start: 20190423
  39. INFLECTRA [Suspect]
     Active Substance: INFLIXIMAB-DYYB
     Dosage: 1050 MG, EVERY 4 WEEKS
     Route: 042
     Dates: start: 20190524
  40. PREDNISONE. [Concomitant]
     Active Substance: PREDNISONE
     Dosage: 5 MG CAPS 1 PILL ONCE A DAY AT BREAKFAST FOR 1 MONTH
  41. LORATADINE. [Concomitant]
     Active Substance: LORATADINE
     Dosage: 10 MG, UNK
     Route: 048
     Dates: start: 20190524
  42. INFLECTRA [Suspect]
     Active Substance: INFLIXIMAB-DYYB
     Dosage: UNK
     Route: 065
     Dates: start: 20180124
  43. INFLECTRA [Suspect]
     Active Substance: INFLIXIMAB-DYYB
     Dosage: UNK
     Route: 065
     Dates: start: 20180221
  44. INFLECTRA [Suspect]
     Active Substance: INFLIXIMAB-DYYB
     Dosage: 1050 MG, THEN EVERY 4 WEEKS
     Route: 042
     Dates: start: 20180517
  45. INFLECTRA [Suspect]
     Active Substance: INFLIXIMAB-DYYB
     Dosage: 1050 MG, THEN EVERY 4 WEEKS
     Route: 042
     Dates: start: 20190107
  46. INFLECTRA [Suspect]
     Active Substance: INFLIXIMAB-DYYB
     Dosage: UNK
     Route: 042
     Dates: start: 20190430
  47. CORTISONE [Concomitant]
     Active Substance: CORTISONE
     Dosage: UNK
     Route: 065
  48. LORATADINE. [Concomitant]
     Active Substance: LORATADINE
     Dosage: UNK
     Route: 048
     Dates: start: 20181207, end: 20181207
  49. SUMATRIPTAN. [Concomitant]
     Active Substance: SUMATRIPTAN
     Indication: MIGRAINE
     Dosage: 1 DF, UNK
     Dates: start: 20171229
  50. ACETAMINOPHEN. [Concomitant]
     Active Substance: ACETAMINOPHEN
     Indication: PREMEDICATION
     Dosage: 1000 MG, UNK
     Route: 048
     Dates: start: 20180615, end: 20180615
  51. INFLECTRA [Suspect]
     Active Substance: INFLIXIMAB-DYYB
     Dosage: 1050 MG, (THEN EVERY 4 WEEKS)
     Route: 042
     Dates: start: 20161228
  52. INFLECTRA [Suspect]
     Active Substance: INFLIXIMAB-DYYB
     Dosage: 1050 MG, EVERY 4 WEEKS
     Route: 042
     Dates: start: 20180716
  53. INFLECTRA [Suspect]
     Active Substance: INFLIXIMAB-DYYB
     Dosage: 1050 MG, EVERY 4 WEEKS
     Route: 042
     Dates: start: 20180910
  54. INFLECTRA [Suspect]
     Active Substance: INFLIXIMAB-DYYB
     Dosage: 1050 MG, THEN EVERY 4 WEEKS
     Route: 042
     Dates: start: 20190218
  55. AMOXYL [Concomitant]
     Active Substance: AMOXICILLIN
     Indication: SINUSITIS
     Dosage: 300 MG, 3X/DAY
     Route: 048
     Dates: start: 2007
  56. ELTROXIN [Concomitant]
     Active Substance: LEVOTHYROXINE
     Dosage: 1 DF, 1X/DAY (AM AND PM) WITH 0.15 MG
     Route: 048
     Dates: start: 20170807
  57. LEFLUNOMIDE. [Concomitant]
     Active Substance: LEFLUNOMIDE
     Dosage: UNK
  58. LORATADINE. [Concomitant]
     Active Substance: LORATADINE
     Indication: PREMEDICATION
     Dosage: 10 MG, UNK
     Route: 048
     Dates: start: 20180615, end: 20180615
  59. LORATADINE. [Concomitant]
     Active Substance: LORATADINE
     Dosage: 10 MG, UNK
     Route: 048
     Dates: start: 20190618
  60. VITAMIN D [Concomitant]
     Active Substance: VITAMIN D NOS
     Dosage: 10000 IU, WEEKLY
     Dates: start: 20171123
  61. ELTROXIN LF [Concomitant]
     Dosage: 0.05 MG AS CAPSULE ONCE A DAY IN THE MORNING (WITH A CAPSULE OF 0.15MG = 0.200MG)
     Dates: start: 20160807
  62. REACTINE [CETIRIZINE HYDROCHLORIDE] [Concomitant]
     Active Substance: CETIRIZINE HYDROCHLORIDE
     Indication: PREMEDICATION
     Dosage: 10 MG, UNK
     Route: 048

REACTIONS (31)
  - Oedema peripheral [Recovering/Resolving]
  - Injection site pain [Recovered/Resolved]
  - Cough [Unknown]
  - Nasopharyngitis [Recovered/Resolved]
  - Body temperature fluctuation [Unknown]
  - Photosensitivity reaction [Not Recovered/Not Resolved]
  - Drug ineffective [Unknown]
  - Throat irritation [Recovered/Resolved]
  - Nasal congestion [Unknown]
  - Sinus pain [Unknown]
  - Fatigue [Not Recovered/Not Resolved]
  - Erythema [Recovering/Resolving]
  - Arthralgia [Unknown]
  - Pain in jaw [Unknown]
  - Blood pressure fluctuation [Unknown]
  - Off label use [Unknown]
  - Therapeutic product effect decreased [Unknown]
  - Hot flush [Not Recovered/Not Resolved]
  - Blood pressure increased [Recovered/Resolved]
  - Sunburn [Unknown]
  - Expired product administered [Unknown]
  - Rhinorrhoea [Unknown]
  - Dizziness [Recovered/Resolved]
  - Intentional product use issue [Unknown]
  - Syncope [Recovered/Resolved]
  - Tooth abscess [Unknown]
  - Sinusitis [Unknown]
  - Oropharyngeal pain [Unknown]
  - Pyrexia [Unknown]
  - Pain in extremity [Unknown]
  - Musculoskeletal stiffness [Unknown]

NARRATIVE: CASE EVENT DATE: 2016
